FAERS Safety Report 4473647-4 (Version None)
Quarter: 2004Q3

REPORT INFORMATION
  Report Type: 
  Country: None (occurrence: None)
  Receive Date: 20040907
  Receipt Date: 20040726
  Transmission Date: 20050211
  Serious: No
  Sender: FDA-Public Use
  Company Number: USA040773529

PATIENT
  Age: 85 Year
  Sex: Male

DRUGS (2)
  1. ALIMTA [Suspect]
  2. DEXAMETHASONE [Concomitant]

REACTIONS (1)
  - RASH [None]
